FAERS Safety Report 4493182-7 (Version None)
Quarter: 2004Q4

REPORT INFORMATION
  Report Type: 
  Country: None (occurrence: None)
  Receive Date: 20041029
  Receipt Date: 20041018
  Transmission Date: 20050328
  Serious: Yes (Disabling, Other)
  Sender: FDA-Public Use
  Company Number: 2004239809US

PATIENT
  Age: 54 Year
  Sex: Female
  Weight: 62.6 kg

DRUGS (4)
  1. AROMASIN [Suspect]
     Dosage: 25 MG, QD, ORAL
     Route: 048
     Dates: start: 20040629, end: 20041004
  2. VITAMIN E [Concomitant]
  3. VITAMIN C [Concomitant]
  4. CENTRUM (VITAMINS NOS) [Concomitant]

REACTIONS (21)
  - ABDOMINAL DISTENSION [None]
  - ANXIETY [None]
  - APATHY [None]
  - ARTHRITIS [None]
  - BRONCHITIS [None]
  - CHEST PAIN [None]
  - CONDITION AGGRAVATED [None]
  - COUGH [None]
  - DEPRESSION [None]
  - DYSPNOEA [None]
  - EYE REDNESS [None]
  - FATIGUE [None]
  - FEELING ABNORMAL [None]
  - HOT FLUSH [None]
  - MALAISE [None]
  - NERVOUSNESS [None]
  - PAIN [None]
  - PALPITATIONS [None]
  - TREMOR [None]
  - TUMOUR MARKER INCREASED [None]
  - WEIGHT INCREASED [None]
